FAERS Safety Report 15934986 (Version 2)
Quarter: 2019Q1

REPORT INFORMATION
  Report Type: Report from Study
  Country: US (occurrence: US)
  Receive Date: 20190207
  Receipt Date: 20190310
  Transmission Date: 20190417
  Serious: Yes (Other)
  Sender: FDA-Public Use
  Company Number: US-SHIRE-US201903590

PATIENT
  Age: 53 Year
  Sex: Female

DRUGS (2)
  1. HUMAN NORMAL IMMUNOGLOBULIN; LIQUID 20 [Suspect]
     Active Substance: HUMAN IMMUNOGLOBULIN G
     Dosage: 20 GRAM, (4 GRAM)
     Route: 065
  2. HUMAN NORMAL IMMUNOGLOBULIN; LIQUID 20 [Suspect]
     Active Substance: HUMAN IMMUNOGLOBULIN G
     Indication: IMMUNODEFICIENCY COMMON VARIABLE
     Dosage: 20 GRAM (8 GRAM), UNKNOWN
     Route: 065

REACTIONS (9)
  - Malaise [Unknown]
  - Pneumonitis [Recovering/Resolving]
  - Arthralgia [Unknown]
  - Vomiting [Recovering/Resolving]
  - Tremor [Recovering/Resolving]
  - Asthenia [Recovering/Resolving]
  - Feeling cold [Recovering/Resolving]
  - Chills [Unknown]
  - Rash generalised [Recovering/Resolving]

NARRATIVE: CASE EVENT DATE: 20190126
